FAERS Safety Report 19176432 (Version 1)
Quarter: 2021Q2

REPORT INFORMATION
  Report Type: Spontaneous
  Country: BE (occurrence: BE)
  Receive Date: 20210423
  Receipt Date: 20210423
  Transmission Date: 20210717
  Serious: Yes (Life-Threatening)
  Sender: FDA-Public Use
  Company Number: BE-PFIZER INC-2021214583

PATIENT
  Age: 47 Year
  Sex: Male
  Weight: 91 kg

DRUGS (4)
  1. CISATRACURIUM BESILATE [Suspect]
     Active Substance: CISATRACURIUM BESYLATE
     Indication: ANAESTHESIA
     Dosage: 12 MG
  2. SUFENTANIL [Suspect]
     Active Substance: SUFENTANIL
     Indication: ANAESTHESIA
     Dosage: 10 UG
  3. SEVOFLURANE. [Suspect]
     Active Substance: SEVOFLURANE
     Indication: ANAESTHESIA
     Dosage: 2 VOL%, IN O2/N20 MIXTURE
  4. PROPOFOL. [Suspect]
     Active Substance: PROPOFOL
     Indication: ANAESTHESIA
     Dosage: 200 MG

REACTIONS (1)
  - Hyperthermia malignant [Recovered/Resolved]
